FAERS Safety Report 14306184 (Version 1)
Quarter: 2017Q4

REPORT INFORMATION
  Report Type: Spontaneous
  Country: FR (occurrence: FR)
  Receive Date: 20171219
  Receipt Date: 20171219
  Transmission Date: 20180321
  Serious: Yes (Other)
  Sender: FDA-Public Use
  Company Number: FR-MERCK KGAA-2037436

PATIENT
  Age: 54 Year
  Sex: Female

DRUGS (1)
  1. NOVOTHYROX [Suspect]
     Active Substance: LEVOTHYROXINE SODIUM
     Indication: POST PROCEDURAL HYPOTHYROIDISM
     Dates: start: 20170426

REACTIONS (23)
  - Fatigue [Unknown]
  - Musculoskeletal stiffness [Unknown]
  - Vomiting [Unknown]
  - Hyperhidrosis [Unknown]
  - Loss of libido [Unknown]
  - Apathy [Unknown]
  - Disturbance in attention [Unknown]
  - Lethargy [Unknown]
  - Social avoidant behaviour [Unknown]
  - Pain [Unknown]
  - Tachycardia [Unknown]
  - Diarrhoea [Unknown]
  - Insomnia [Recovered/Resolved]
  - Somnolence [Unknown]
  - Hypokinesia [Unknown]
  - Visual impairment [Unknown]
  - Loss of personal independence in daily activities [Unknown]
  - Asthma [Unknown]
  - Suicidal ideation [Unknown]
  - Amnesia [Unknown]
  - Gastrointestinal pain [Unknown]
  - Hot flush [Recovered/Resolved]
  - Asthenia [Unknown]

NARRATIVE: CASE EVENT DATE: 2017
